FAERS Safety Report 5228116-0 (Version None)
Quarter: 2007Q1

REPORT INFORMATION
  Report Type: 
  Country: None (occurrence: None)
  Receive Date: 20070130
  Receipt Date: 20061130
  Transmission Date: 20070707
  Serious: Yes (Death)
  Sender: FDA-Public Use
  Company Number: T200601539

PATIENT
  Age: 25 Year
  Sex: 0

DRUGS (3)
  1. HYDROCODONE/ACETAMINOPHEN (HYDROCODONE [Suspect]
     Indication: DRUG USE FOR UNKNOWN INDICATION
     Dosage: ORAL
     Route: 048
  2. COCAINE (COCAINE) [Suspect]
     Indication: DRUG USE FOR UNKNOWN INDICATION
     Dosage: INSUFFLATION
  3. TRICYCLIC ANTIDEPRESSANTS() [Suspect]
     Indication: DRUG USE FOR UNKNOWN INDICATION

REACTIONS (3)
  - CARDIO-RESPIRATORY ARREST [None]
  - DRUG ABUSER [None]
  - INTENTIONAL DRUG MISUSE [None]
